FAERS Safety Report 24038054 (Version 1)
Quarter: 2024Q3

REPORT INFORMATION
  Report Type: Report from Study
  Country: US (occurrence: US)
  Receive Date: 20240702
  Receipt Date: 20240702
  Transmission Date: 20241016
  Serious: Yes (Other)
  Sender: RANBAXY
  Company Number: US-SUN PHARMACEUTICAL INDUSTRIES LTD-2023R1-376338

PATIENT
  Age: 10 Year
  Sex: Male

DRUGS (1)
  1. ISOTRETINOIN [Suspect]
     Active Substance: ISOTRETINOIN
     Indication: Neuroblastoma
     Dosage: 160 MILLIGRAM/SQ. METER, DAILY
     Route: 065

REACTIONS (2)
  - Epiphyses premature fusion [Recovered/Resolved]
  - Bone deformity [Recovered/Resolved]
